FAERS Safety Report 13816722 (Version 2)
Quarter: 2017Q3

REPORT INFORMATION
  Report Type: Spontaneous
  Country: US (occurrence: US)
  Receive Date: 20170731
  Receipt Date: 20170912
  Transmission Date: 20171127
  Serious: No
  Sender: FDA-Public Use
  Company Number: US-JNJFOC-20170602708

PATIENT
  Sex: Female

DRUGS (4)
  1. ZYRTEC [Suspect]
     Active Substance: CETIRIZINE HYDROCHLORIDE
     Indication: FOOD ALLERGY
     Dosage: 1 OR 2 TABLETS, WHENEVER SHE HAS REACTIONS
     Route: 048
  2. ZYRTEC [Suspect]
     Active Substance: CETIRIZINE HYDROCHLORIDE
     Indication: EYE SWELLING
     Dosage: 1 OR 2 TABLETS, WHENEVER SHE HAS REACTIONS
     Route: 048
  3. ZYRTEC [Suspect]
     Active Substance: CETIRIZINE HYDROCHLORIDE
     Indication: HISTAMINE INTOLERANCE
     Dosage: 1 OR 2 TABLETS, WHENEVER SHE HAS REACTIONS
     Route: 048
  4. ZYRTEC [Suspect]
     Active Substance: CETIRIZINE HYDROCHLORIDE
     Indication: HISTAMINE ABNORMAL
     Dosage: 1 OR 2 TABLETS, WHENEVER SHE HAS REACTIONS
     Route: 048

REACTIONS (3)
  - Therapeutic response unexpected [Unknown]
  - Drug administration error [Unknown]
  - Product use in unapproved indication [Unknown]
